FAERS Safety Report 7204897-1 (Version None)
Quarter: 2010Q4

REPORT INFORMATION
  Report Type: 
  Country: None (occurrence: None)
  Receive Date: 20101230
  Receipt Date: 20101222
  Transmission Date: 20110411
  Serious: Yes (Hospitalization)
  Sender: FDA-Public Use
  Company Number: FR-JNJFOC-20101207704

PATIENT
  Age: 40 Year
  Sex: Male

DRUGS (6)
  1. REMICADE [Suspect]
     Indication: ANKYLOSING SPONDYLITIS
     Route: 042
  2. REMICADE [Suspect]
     Indication: CROHN'S DISEASE
     Route: 042
  3. IMUREL [Suspect]
     Indication: PRODUCT USED FOR UNKNOWN INDICATION
     Route: 048
  4. LYSANXIA [Concomitant]
     Indication: PRODUCT USED FOR UNKNOWN INDICATION
     Route: 048
  5. LEXOMIL [Concomitant]
     Indication: PRODUCT USED FOR UNKNOWN INDICATION
     Route: 048
  6. DEROXAT [Concomitant]
     Indication: PRODUCT USED FOR UNKNOWN INDICATION
     Route: 048

REACTIONS (7)
  - CHOLESTASIS [None]
  - COUGH [None]
  - DISSEMINATED TUBERCULOSIS [None]
  - GENERAL PHYSICAL HEALTH DETERIORATION [None]
  - PYREXIA [None]
  - RESPIRATORY DISTRESS [None]
  - VOMITING [None]
